FAERS Safety Report 6099693-5 (Version None)
Quarter: 2009Q1

REPORT INFORMATION
  Report Type: 
  Country: None (occurrence: None)
  Receive Date: 20090303
  Receipt Date: 20090128
  Transmission Date: 20090719
  Serious: No
  Sender: FDA-Public Use
  Company Number: US-BAYER-200910337BCC

PATIENT
  Age: 77 Year
  Sex: Male
  Weight: 122 kg

DRUGS (7)
  1. ALEVE (CAPLET) [Suspect]
     Indication: ARTHRALGIA
     Dosage: TOTAL DAILY DOSE: 440 MG  UNIT DOSE: 220 MG
     Route: 048
     Dates: start: 20090121, end: 20090123
  2. ATENOLOL [Concomitant]
  3. LISINOPRIL [Concomitant]
  4. TERAZOSIN HCL [Concomitant]
  5. FUROSEMIDE [Concomitant]
  6. ALLOPURINOL [Concomitant]
  7. ASPIRIN [Concomitant]

REACTIONS (1)
  - ARTHRALGIA [None]
